FAERS Safety Report 10833767 (Version 2)
Quarter: 2015Q1

REPORT INFORMATION
  Report Type: Spontaneous
  Country: JP (occurrence: JP)
  Receive Date: 20150219
  Receipt Date: 20150302
  Transmission Date: 20150721
  Serious: Yes (Life-Threatening, Other)
  Sender: FDA-Public Use
  Company Number: JP-PFIZER INC-2015057337

PATIENT
  Age: 7 Decade
  Sex: Female

DRUGS (3)
  1. CYLOCIDE [Suspect]
     Active Substance: CYTARABINE
     Indication: ACUTE MYELOID LEUKAEMIA
     Dosage: UNK
  2. IDARUBICIN HCL [Suspect]
     Active Substance: IDARUBICIN HYDROCHLORIDE
     Indication: ACUTE MYELOID LEUKAEMIA
     Dosage: UNK
     Dates: end: 201405
  3. CYLOCIDE [Suspect]
     Active Substance: CYTARABINE
     Dosage: UNK, MAINTENANCE TREATMENT WITH HD (HIGH DOSE)

REACTIONS (3)
  - Stomatitis [Recovered/Resolved]
  - Sepsis [Recovered/Resolved]
  - Immunodeficiency [Recovered/Resolved]

NARRATIVE: CASE EVENT DATE: 201407
